FAERS Safety Report 13535456 (Version 1)
Quarter: 2017Q2

REPORT INFORMATION
  Report Type: Spontaneous
  Country: US (occurrence: US)
  Receive Date: 20170510
  Receipt Date: 20170510
  Transmission Date: 20170830
  Serious: No
  Sender: FDA-Public Use
  Company Number: None

PATIENT
  Sex: Female

DRUGS (5)
  1. VITAMIN E [Concomitant]
     Active Substance: .ALPHA.-TOCOPHEROL
  2. FISH OIL [Concomitant]
     Active Substance: FISH OIL
  3. NUPLAZID [Suspect]
     Active Substance: PIMAVANSERIN TARTRATE
     Indication: PARKINSON^S DISEASE
     Dosage: 34 MG (2 17MG TAB) PO
     Route: 048
     Dates: start: 201704, end: 20170505
  4. CALCIUM [Concomitant]
     Active Substance: CALCIUM
  5. VITAMIN B12 [Concomitant]
     Active Substance: CYANOCOBALAMIN

REACTIONS (3)
  - Feeling abnormal [None]
  - Dyspnoea [None]
  - Therapy cessation [None]
